FAERS Safety Report 23409049 (Version 1)
Quarter: 2024Q1

REPORT INFORMATION
  Report Type: Other
  Country: US (occurrence: None)
  Receive Date: 20240117
  Receipt Date: 20240117
  Transmission Date: 20240410
  Serious: Yes (Other)
  Sender: FDA-Public Use
  Company Number: US-ROCHE-3476339

PATIENT
  Sex: Female

DRUGS (1)
  1. CELLCEPT [Suspect]
     Active Substance: MYCOPHENOLATE MOFETIL
     Indication: Systemic lupus erythematosus
     Dosage: 500MG 2 TABLETS BID
     Route: 048

REACTIONS (6)
  - Off label use [Unknown]
  - Cerebrovascular accident [Unknown]
  - Memory impairment [Unknown]
  - Ill-defined disorder [Unknown]
  - Seizure [Unknown]
  - Renal failure [Unknown]
